FAERS Safety Report 11800195 (Version 4)
Quarter: 2017Q4

REPORT INFORMATION
  Report Type: Report from Study
  Country: GB (occurrence: GB)
  Receive Date: 20151203
  Receipt Date: 20171123
  Transmission Date: 20180320
  Serious: Yes (Hospitalization, Other)
  Sender: FDA-Public Use
  Company Number: GB-AMGEN-GBRSL2015126755

PATIENT
  Sex: Female

DRUGS (2)
  1. ARANESP [Suspect]
     Active Substance: DARBEPOETIN ALFA
     Dosage: 60 MUG, UNK
     Route: 065
  2. ARANESP [Suspect]
     Active Substance: DARBEPOETIN ALFA
     Indication: PRODUCT USED FOR UNKNOWN INDICATION
     Dosage: 40 MUG, UNK
     Route: 065

REACTIONS (7)
  - Lower respiratory tract infection [Unknown]
  - Cataract operation [Unknown]
  - Restlessness [Unknown]
  - Chronic obstructive pulmonary disease [Unknown]
  - Renal disorder [Unknown]
  - Oxygen saturation decreased [Unknown]
  - Peripheral swelling [Unknown]
